FAERS Safety Report 6171052-6 (Version None)
Quarter: 2009Q2

REPORT INFORMATION
  Report Type: 
  Country: None (occurrence: None)
  Receive Date: 20090429
  Receipt Date: 20090423
  Transmission Date: 20091009
  Serious: Yes (Other)
  Sender: FDA-Public Use
  Company Number: US-JNJFOC-20090406426

PATIENT
  Sex: Female
  Weight: 74.84 kg

DRUGS (4)
  1. DURAGESIC-100 [Suspect]
     Indication: PAIN
     Route: 062
  2. OXYCODONE [Concomitant]
     Indication: PAIN
     Route: 048
  3. KLONOPIN [Concomitant]
     Indication: SLEEP DISORDER THERAPY
     Route: 048
  4. TRAZODONE HCL [Concomitant]
     Indication: SLEEP DISORDER THERAPY
     Route: 048

REACTIONS (6)
  - ENERGY INCREASED [None]
  - FEELING ABNORMAL [None]
  - INCORRECT DRUG ADMINISTRATION DURATION [None]
  - PANIC ATTACK [None]
  - PRODUCT QUALITY ISSUE [None]
  - WEIGHT DECREASED [None]
